FAERS Safety Report 7514701-X (Version None)
Quarter: 2011Q2

REPORT INFORMATION
  Report Type: 
  Country: None (occurrence: None)
  Receive Date: 20110526
  Receipt Date: 20110526
  Transmission Date: 20111010
  Serious: Yes (Other)
  Sender: FDA-Public Use
  Company Number: None

PATIENT
  Sex: Female
  Weight: 113.3993 kg

DRUGS (1)
  1. BISACODYL [Suspect]
     Indication: CONSTIPATION
     Dosage: 1-3 PER DA ONLY TOOK 1 DAY
     Dates: start: 20110503

REACTIONS (2)
  - HAEMATOCHEZIA [None]
  - BLOOD URINE PRESENT [None]
